FAERS Safety Report 9556368 (Version 2)
Quarter: 2013Q4

REPORT INFORMATION
  Report Type: Spontaneous
  Country: US (occurrence: US)
  Receive Date: 20130926
  Receipt Date: 20131203
  Transmission Date: 20140711
  Serious: Yes (Life-Threatening, Hospitalization)
  Sender: FDA-Public Use
  Company Number: US-BAYER-2013-116298

PATIENT
  Age: 40 Year
  Sex: Female

DRUGS (3)
  1. MIRENA [Suspect]
     Indication: CONTRACEPTION
     Dosage: 20 MCG/24HR, CONT
     Route: 015
     Dates: start: 20110823, end: 20111011
  2. LEXAPRO [Concomitant]
     Indication: ANXIETY
     Dosage: 20 MG, UNK
     Dates: start: 2009, end: 2012
  3. CYTOTEC [Concomitant]
     Dosage: 200 MCG, ON NIGHT BEFORE IUD PLACEMENT
     Route: 048

REACTIONS (8)
  - Uterine perforation [None]
  - Pain [None]
  - Injury [None]
  - General physical health deterioration [None]
  - Anxiety [None]
  - Anhedonia [None]
  - Emotional distress [None]
  - Depression [None]
